FAERS Safety Report 15643728 (Version 1)
Quarter: 2018Q4

REPORT INFORMATION
  Report Type: Spontaneous
  Country: US (occurrence: US)
  Receive Date: 20181121
  Receipt Date: 20181121
  Transmission Date: 20190205
  Serious: Yes (Hospitalization)
  Sender: FDA-Public Use
  Company Number: US-FRESENIUS KABI-FK201811864

PATIENT
  Sex: Male

DRUGS (2)
  1. CONSTULOSE [Suspect]
     Active Substance: LACTULOSE
     Indication: LIVER DISORDER
  2. CONSTULOSE [Suspect]
     Active Substance: LACTULOSE
     Indication: CONSTIPATION
     Dosage: 10 G/15 ML
     Route: 065
     Dates: start: 20180110

REACTIONS (1)
  - Drug ineffective [Recovered/Resolved]
